FAERS Safety Report 24064481 (Version 1)
Quarter: 2024Q3

REPORT INFORMATION
  Report Type: Other
  Country: DE (occurrence: DE)
  Receive Date: 20240709
  Receipt Date: 20240709
  Transmission Date: 20241016
  Serious: Yes (Other)
  Sender: GLENMARK
  Company Number: DE-GLENMARK PHARMACEUTICALS-2024GMK091935

PATIENT

DRUGS (1)
  1. DIMETHYL FUMARATE [Suspect]
     Active Substance: DIMETHYL FUMARATE
     Indication: Psoriasis
     Dosage: 30 MILLIGRAM
     Route: 048
     Dates: end: 20240502

REACTIONS (5)
  - Epilepsy [Unknown]
  - Progressive multifocal leukoencephalopathy [Not Recovered/Not Resolved]
  - Disturbance in attention [Unknown]
  - Disturbance in attention [Unknown]
  - Lymphopenia [Unknown]

NARRATIVE: CASE EVENT DATE: 20240301
